FAERS Safety Report 7099304-6 (Version None)
Quarter: 2010Q4

REPORT INFORMATION
  Report Type: 
  Country: None (occurrence: None)
  Receive Date: 20101112
  Receipt Date: 20101102
  Transmission Date: 20110411
  Serious: Yes (Hospitalization)
  Sender: FDA-Public Use
  Company Number: PHHY2010FR29429

PATIENT
  Sex: Male

DRUGS (4)
  1. TRILEPTAL [Suspect]
     Indication: TEMPORAL LOBE EPILEPSY
     Dosage: 600 MG DAILY
     Dates: start: 20070101
  2. TOPALGIC ^HOUDE^ [Concomitant]
  3. EFFERALGAN [Concomitant]
  4. LEXOMIL [Concomitant]

REACTIONS (8)
  - BLOOD ALKALINE PHOSPHATASE INCREASED [None]
  - BLOOD CALCIUM DECREASED [None]
  - MUSCULOSKELETAL CHEST PAIN [None]
  - OSTEOMALACIA [None]
  - OSTEOPOROSIS [None]
  - RESPIRATORY TRACT INFECTION [None]
  - RIB FRACTURE [None]
  - VITAMIN D DECREASED [None]
